FAERS Safety Report 21485706 (Version 1)
Quarter: 2022Q4

REPORT INFORMATION
  Report Type: Report from Study
  Country: US (occurrence: US)
  Receive Date: 20221020
  Receipt Date: 20221020
  Transmission Date: 20230113
  Serious: Yes (Hospitalization, Other)
  Sender: FDA-Public Use
  Company Number: US-BoehringerIngelheim-2021-BI-091632

PATIENT
  Age: 63 Year
  Sex: Male

DRUGS (4)
  1. OFEV [Suspect]
     Active Substance: NINTEDANIB
     Indication: Idiopathic pulmonary fibrosis
     Route: 048
     Dates: start: 202106
  2. OFEV [Suspect]
     Active Substance: NINTEDANIB
     Route: 048
  3. OFEV [Suspect]
     Active Substance: NINTEDANIB
     Dosage: 150 MG DAILY EVERY OTHER DAY AND 150 MG TWICE DAILY EVERY OTHER DAY
     Route: 048
  4. PREDNISONE [Concomitant]
     Active Substance: PREDNISONE
     Indication: Product used for unknown indication

REACTIONS (15)
  - Renal disorder [Unknown]
  - Pulmonary oedema [Unknown]
  - Cough [Unknown]
  - Diarrhoea [Recovering/Resolving]
  - Nasopharyngitis [Unknown]
  - Melaena [Unknown]
  - Insomnia [Unknown]
  - Hypertension [Not Recovered/Not Resolved]
  - Decreased appetite [Not Recovered/Not Resolved]
  - Fatigue [Not Recovered/Not Resolved]
  - Depression [Unknown]
  - Gastric disorder [Unknown]
  - Nephrolithiasis [Unknown]
  - Frequent bowel movements [Unknown]
  - Arthropod sting [Unknown]

NARRATIVE: CASE EVENT DATE: 20220701
